FAERS Safety Report 12326983 (Version 1)
Quarter: 2016Q2

REPORT INFORMATION
  Report Type: Spontaneous
  Country: None (occurrence: None)
  Receive Date: 20160502
  Receipt Date: 20160502
  Transmission Date: 20160815
  Serious: Yes (Life-Threatening, Hospitalization, Disabling)
  Sender: FDA-Public Use
  Company Number: None

PATIENT
  Age: 25 Year
  Sex: Female
  Weight: 75.75 kg

DRUGS (2)
  1. MULTI-MIN BOTICS [Concomitant]
  2. LEVOFLOXACIN, 750 MG [Suspect]
     Active Substance: LEVOFLOXACIN
     Indication: BRONCHITIS
     Dosage: 7 CAPSULE(S) IN THE MORNING TAKEN BY MOUTH
     Route: 048
     Dates: start: 20140828, end: 20140907

REACTIONS (11)
  - Gastric disorder [None]
  - Tinnitus [None]
  - Ocular discomfort [None]
  - Temporomandibular joint syndrome [None]
  - Eye disorder [None]
  - Photopsia [None]
  - Visual impairment [None]
  - Head discomfort [None]
  - Dysphagia [None]
  - Anxiety [None]
  - Gastrooesophageal reflux disease [None]

NARRATIVE: CASE EVENT DATE: 20140828
